FAERS Safety Report 9407891 (Version 1)
Quarter: 2013Q3

REPORT INFORMATION
  Report Type: Spontaneous
  Country: SE (occurrence: SE)
  Receive Date: 20130718
  Receipt Date: 20130718
  Transmission Date: 20140515
  Serious: Yes (Other)
  Sender: FDA-Public Use
  Company Number: SE-009507513-1307SWE007976

PATIENT
  Age: 51 Year
  Sex: Male

DRUGS (1)
  1. SIMVASTATIN [Suspect]
     Route: 048

REACTIONS (1)
  - Cognitive disorder [Unknown]
